FAERS Safety Report 11331603 (Version 1)
Quarter: 2015Q3

REPORT INFORMATION
  Report Type: Other
  Country: GB (occurrence: GB)
  Receive Date: 20150803
  Receipt Date: 20150803
  Transmission Date: 20151125
  Serious: Yes (Other)
  Sender: FDA-Public Use
  Company Number: GB-MYLANLABS-2015M1024963

PATIENT

DRUGS (8)
  1. NASONEX [Concomitant]
     Active Substance: MOMETASONE FUROATE
     Dosage: 2 DF, BID (1 SPRAY EACH)
     Route: 045
     Dates: start: 20111104
  2. AMITRIPTYLINE HYDROCHLORIDE. [Concomitant]
     Active Substance: AMITRIPTYLINE HYDROCHLORIDE
     Dosage: TAKE ONE TO FOUR AT NIGHT
     Dates: start: 20140718
  3. BENDROFLUMETHIAZIDE [Concomitant]
     Active Substance: BENDROFLUMETHIAZIDE
     Dosage: 1 DF, QD
     Dates: start: 20141021
  4. COCODAMOL [Concomitant]
     Active Substance: ACETAMINOPHEN\CODEINE PHOSPHATE
     Dosage: TAKE 1 OR 2 4 TIMES/DAY
     Dates: start: 20120716
  5. LOSARTAN. [Concomitant]
     Active Substance: LOSARTAN
     Dosage: 1 DF, QD
     Dates: start: 20150306
  6. TRAMADOL. [Suspect]
     Active Substance: TRAMADOL
     Dosage: UNK
     Dates: start: 20150330
  7. NAPROXEN. [Concomitant]
     Active Substance: NAPROXEN
     Dosage: 1 DF, BID, AFTER FOOD
     Dates: start: 20140930
  8. COLECALCIFEROL [Concomitant]
     Active Substance: CHOLECALCIFEROL
     Dosage: 1 DF, QW (USE AS DIRECTED 1 PER WEEK THEN STOP)
     Dates: start: 20150423, end: 20150505

REACTIONS (5)
  - Headache [Recovering/Resolving]
  - Hyperhidrosis [Recovering/Resolving]
  - Mood swings [Recovering/Resolving]
  - Serotonin syndrome [Recovering/Resolving]
  - Tearfulness [Recovering/Resolving]

NARRATIVE: CASE EVENT DATE: 20150710
